FAERS Safety Report 7112564-8 (Version None)
Quarter: 2010Q4

REPORT INFORMATION
  Report Type: 
  Country: None (occurrence: None)
  Receive Date: 20101119
  Receipt Date: 20101110
  Transmission Date: 20110411
  Serious: Yes (Hospitalization)
  Sender: FDA-Public Use
  Company Number: US-AMGEN-USASP2010004619

PATIENT

DRUGS (8)
  1. PROCRIT [Suspect]
     Indication: PRODUCT USED FOR UNKNOWN INDICATION
     Dosage: 40000 IU, QWK
     Route: 058
     Dates: start: 20090701
  2. TOPROL-XL [Concomitant]
     Dosage: 100 MG, QD
     Route: 048
  3. NORVASC [Concomitant]
     Dosage: 5 MG, QD
     Route: 048
  4. ALLOPURINOL [Concomitant]
     Dosage: UNK UNK, QD
     Route: 048
  5. COLCHICINE [Concomitant]
     Dosage: 0.6 MG, QOD
     Route: 048
  6. LASIX [Concomitant]
     Dosage: 40 MG, QD
     Route: 048
  7. VASOTEC [Concomitant]
     Dosage: 2.5 MG, Q12H
     Route: 048
  8. LIPITOR [Suspect]
     Dosage: 40 MG, QD
     Route: 048

REACTIONS (3)
  - ATRIAL FIBRILLATION [None]
  - BLOOD POTASSIUM INCREASED [None]
  - UNRESPONSIVE TO STIMULI [None]
